FAERS Safety Report 13676643 (Version 3)
Quarter: 2017Q3

REPORT INFORMATION
  Report Type: Spontaneous
  Country: US (occurrence: US)
  Receive Date: 20170622
  Receipt Date: 20170908
  Transmission Date: 20171127
  Serious: No
  Sender: FDA-Public Use
  Company Number: US-PFIZER INC-2017268818

PATIENT
  Age: 32 Year
  Sex: Female
  Weight: 50 kg

DRUGS (4)
  1. SPIRONOLACTONE. [Suspect]
     Active Substance: SPIRONOLACTONE
     Indication: HYPOKALAEMIA
     Dosage: 25 MG, DAILY AFTER 3 YRS
     Route: 048
     Dates: start: 1998
  2. SPIRONOLACTONE. [Suspect]
     Active Substance: SPIRONOLACTONE
     Indication: HORMONE LEVEL ABNORMAL
     Dosage: 25 MG, 2X/DAY (INITIALLY 3 WEEKS ON 1 WEEK OFF)
     Route: 048
     Dates: start: 1995
  3. SPIRONOLACTONE. [Suspect]
     Active Substance: SPIRONOLACTONE
     Indication: HYPERTRICHOSIS
     Dosage: 25 MG, 2X/DAY
     Route: 048
     Dates: start: 1993, end: 201704
  4. SPIRONOLACTONE. [Suspect]
     Active Substance: SPIRONOLACTONE
     Dosage: 37.5 MG, DAILY
     Route: 048
     Dates: start: 20130604, end: 201704

REACTIONS (2)
  - Weight decreased [Unknown]
  - Premature menopause [Unknown]

NARRATIVE: CASE EVENT DATE: 1995
